FAERS Safety Report 15392050 (Version 2)
Quarter: 2018Q3

REPORT INFORMATION
  Report Type: Spontaneous
  Country: US (occurrence: US)
  Receive Date: 20180917
  Receipt Date: 20180919
  Transmission Date: 20181010
  Serious: Yes (Disabling, Other)
  Sender: FDA-Public Use
  Company Number: US-PFIZER INC-2018368461

PATIENT
  Age: 53 Year
  Sex: Female
  Weight: 81.77 kg

DRUGS (1)
  1. OXALIPLATIN. [Suspect]
     Active Substance: OXALIPLATIN
     Indication: COLON CANCER
     Dosage: 255 MG, UNK(IV INFUSION OVER TWO HOURS)
     Route: 042
     Dates: start: 20180911

REACTIONS (6)
  - Gait disturbance [Not Recovered/Not Resolved]
  - Muscle spasms [Recovering/Resolving]
  - Speech disorder [Not Recovered/Not Resolved]
  - Pain in extremity [Unknown]
  - Muscle tightness [Not Recovered/Not Resolved]
  - Loss of control of legs [Recovered/Resolved with Sequelae]

NARRATIVE: CASE EVENT DATE: 20180911
